FAERS Safety Report 9102042 (Version 2)
Quarter: 2013Q4

REPORT INFORMATION
  Report Type: Spontaneous
  Country: GB (occurrence: GB)
  Receive Date: 20130218
  Receipt Date: 20131010
  Transmission Date: 20140711
  Serious: Yes (Hospitalization)
  Sender: FDA-Public Use
  Company Number: GB-RANBAXY-2013R1-65203

PATIENT
  Age: 46 Year
  Sex: Male
  Weight: 79.37 kg

DRUGS (2)
  1. CLARITHROMYCIN [Suspect]
     Indication: LOWER RESPIRATORY TRACT INFECTION
     Dosage: 500 MG, BID
     Route: 048
     Dates: start: 20121228, end: 20130105
  2. DISULFIRAM [Interacting]
     Indication: ALCOHOLISM
     Dosage: 200 MG, QD
     Route: 048
     Dates: start: 20120711

REACTIONS (4)
  - Confusional state [Recovered/Resolved]
  - Drug interaction [Unknown]
  - Memory impairment [Recovered/Resolved]
  - Gait disturbance [Recovered/Resolved]
